FAERS Safety Report 5403014-8 (Version None)
Quarter: 2007Q3

REPORT INFORMATION
  Report Type: 
  Country: None (occurrence: None)
  Receive Date: 20070801
  Receipt Date: 20070724
  Transmission Date: 20080115
  Serious: Yes (Hospitalization)
  Sender: FDA-Public Use
  Company Number: US-ASTRAZENECA-2007UW08213

PATIENT
  Sex: Male
  Weight: 78 kg

DRUGS (11)
  1. SEROQUEL [Suspect]
     Indication: SCHIZOAFFECTIVE DISORDER
     Route: 048
     Dates: start: 19980101
  2. SEROQUEL [Suspect]
     Route: 048
  3. SEROQUEL [Suspect]
     Route: 048
     Dates: end: 20050901
  4. SEROQUEL [Suspect]
     Route: 048
     Dates: start: 20050428
  5. ABILIFY [Concomitant]
  6. WELLBUTRIN [Concomitant]
  7. LEXAPRO [Concomitant]
  8. LAMICTAL [Concomitant]
  9. LAMICTAL [Concomitant]
  10. KLONOPIN [Concomitant]
  11. RITALIN [Concomitant]
     Indication: ATTENTION DEFICIT/HYPERACTIVITY DISORDER

REACTIONS (4)
  - FALL [None]
  - INTERVERTEBRAL DISC INJURY [None]
  - STUPOR [None]
  - THORACIC VERTEBRAL FRACTURE [None]
